FAERS Safety Report 25719367 (Version 1)
Quarter: 2025Q3

REPORT INFORMATION
  Report Type: Spontaneous
  Country: JP (occurrence: JP)
  Receive Date: 20250824
  Receipt Date: 20250824
  Transmission Date: 20251021
  Serious: Yes (Death)
  Sender: TAKEDA
  Company Number: JP-TAKEDA-2025TJP008480

PATIENT
  Age: 9 Decade
  Sex: Male

DRUGS (1)
  1. FRUZAQLA [Suspect]
     Active Substance: FRUQUINTINIB
     Indication: Product used for unknown indication

REACTIONS (1)
  - Disease progression [Fatal]
